FAERS Safety Report 18164527 (Version 1)
Quarter: 2020Q3

REPORT INFORMATION
  Report Type: Spontaneous
  Country: SA (occurrence: SA)
  Receive Date: 20200818
  Receipt Date: 20200818
  Transmission Date: 20201103
  Serious: Yes (Hospitalization, Other)
  Sender: FDA-Public Use
  Company Number: SA-VALIDUS PHARMACEUTICALS LLC-SA-2020VAL000668

PATIENT

DRUGS (3)
  1. ACTIVATED CHARCOAL. [Suspect]
     Active Substance: ACTIVATED CHARCOAL
     Dosage: 150 G, (POST?OPERATIVE)
     Route: 048
  2. CARBAMAZEPINE. [Suspect]
     Active Substance: CARBAMAZEPINE
     Indication: PRODUCT USED FOR UNKNOWN INDICATION
     Dosage: UNK
  3. ACTIVATED CHARCOAL. [Suspect]
     Active Substance: ACTIVATED CHARCOAL
     Indication: TOXICITY TO VARIOUS AGENTS
     Dosage: 150 G, OVER 24 H (MULTIPLE?DOSE)
     Route: 045

REACTIONS (2)
  - Overdose [Unknown]
  - Small intestinal obstruction [Recovered/Resolved]
